FAERS Safety Report 17586287 (Version 1)
Quarter: 2020Q1

REPORT INFORMATION
  Report Type: Spontaneous
  Country: US (occurrence: US)
  Receive Date: 20200325
  Receipt Date: 20200325
  Transmission Date: 20200409
  Serious: No
  Sender: FDA-Public Use
  Company Number: None

PATIENT
  Age: 49 Year
  Sex: Male

DRUGS (1)
  1. COSENTYX [Suspect]
     Active Substance: SECUKINUMAB
     Indication: ANKYLOSING SPONDYLITIS
     Dosage: ?          OTHER FREQUENCY:UNKNOWN;?
     Route: 058
     Dates: start: 20180222, end: 20200315

REACTIONS (4)
  - Drug ineffective [None]
  - Pain in extremity [None]
  - Condition aggravated [None]
  - Arteritis [None]

NARRATIVE: CASE EVENT DATE: 20200325
